FAERS Safety Report 16276625 (Version 9)
Quarter: 2022Q1

REPORT INFORMATION
  Report Type: Spontaneous
  Country: US (occurrence: US)
  Receive Date: 20190506
  Receipt Date: 20220204
  Transmission Date: 20220423
  Serious: No
  Sender: FDA-Public Use
  Company Number: US-PFIZER INC-2019184708

PATIENT
  Age: 61 Year
  Sex: Female

DRUGS (3)
  1. SOMATROPIN [Suspect]
     Active Substance: SOMATROPIN
     Dosage: 1.6 MG, DAILY (GENOTROPIN MINIQUICK, 1.6MG/DAY, 7DAYS, WK)
  2. SOMATROPIN [Suspect]
     Active Substance: SOMATROPIN
     Dosage: DOUBLE UP ON DAY ONE THEN DAY TWO AND THEN DAY 5
  3. SOMATROPIN [Suspect]
     Active Substance: SOMATROPIN
     Dosage: 1.3 MG, DAILY

REACTIONS (6)
  - Product dose omission issue [Unknown]
  - Product prescribing error [Unknown]
  - Off label use [Unknown]
  - Product use issue [Unknown]
  - Injection site haemorrhage [Unknown]
  - Malaise [Unknown]
